FAERS Safety Report 18169480 (Version 1)
Quarter: 2020Q3

REPORT INFORMATION
  Report Type: Spontaneous
  Country: CA (occurrence: CA)
  Receive Date: 20200819
  Receipt Date: 20200819
  Transmission Date: 20201103
  Serious: Yes (Life-Threatening)
  Sender: FDA-Public Use
  Company Number: CA-ACCORD-195858

PATIENT
  Age: 1 Year
  Sex: Female
  Weight: 11 kg

DRUGS (22)
  1. DIMENHYDRINATE. [Concomitant]
     Active Substance: DIMENHYDRINATE
  2. CYTARABINE/CYTARABINE HYDROCHLORIDE/CYTARABINE OCFOSFATE [Suspect]
     Active Substance: CYTARABINE
     Indication: ACUTE LYMPHOCYTIC LEUKAEMIA
     Route: 042
  3. EPINEPHRINE. [Concomitant]
     Active Substance: EPINEPHRINE
  4. FLUCONAZOLE. [Concomitant]
     Active Substance: FLUCONAZOLE
  5. METOCLOPRAMIDE. [Concomitant]
     Active Substance: METOCLOPRAMIDE
  6. FILGRASTIM [Concomitant]
     Active Substance: FILGRASTIM
  7. PIPERACILLIN/TAZOBACTAM [Concomitant]
     Active Substance: PIPERACILLIN SODIUM\TAZOBACTAM SODIUM
  8. ASPARAGINASE [Suspect]
     Active Substance: ASPARAGINASE
     Indication: ACUTE LYMPHOCYTIC LEUKAEMIA
     Route: 042
  9. HEPARIN?LEO [Concomitant]
  10. LEVOFLOXACIN. [Concomitant]
     Active Substance: LEVOFLOXACIN
  11. METHYLPREDNISOLONE. [Concomitant]
     Active Substance: METHYLPREDNISOLONE
  12. PARACETAMOL [Concomitant]
     Active Substance: ACETAMINOPHEN
  13. METHOTREXATE. [Suspect]
     Active Substance: METHOTREXATE
     Indication: ACUTE LYMPHOCYTIC LEUKAEMIA
  14. PENTAMIDINE [Concomitant]
     Active Substance: PENTAMIDINE
     Dosage: 300MG/VIAL
  15. VANCOMYCIN [Concomitant]
     Active Substance: VANCOMYCIN
  16. ONDANSETRON [Concomitant]
     Active Substance: ONDANSETRON
  17. ETOPOSIDE. [Suspect]
     Active Substance: ETOPOSIDE
     Indication: ACUTE LYMPHOCYTIC LEUKAEMIA
     Route: 042
  18. HYDROCORTISONE. [Concomitant]
     Active Substance: HYDROCORTISONE
  19. DIPHENHYDRAMINE. [Concomitant]
     Active Substance: DIPHENHYDRAMINE
  20. DEXAMETHASONE. [Concomitant]
     Active Substance: DEXAMETHASONE
  21. TOBRAMYCIN. [Concomitant]
     Active Substance: TOBRAMYCIN
  22. ZINC OXIDE. [Concomitant]
     Active Substance: ZINC OXIDE

REACTIONS (1)
  - Aplastic anaemia [Unknown]
